FAERS Safety Report 7355817-0 (Version None)
Quarter: 2011Q1

REPORT INFORMATION
  Report Type: 
  Country: None (occurrence: None)
  Receive Date: 20110316
  Receipt Date: 20110310
  Transmission Date: 20110831
  Serious: Yes (Life-Threatening, Other)
  Sender: FDA-Public Use
  Company Number: ES-PFIZER INC-2010181623

PATIENT
  Age: 35 Year
  Sex: Female
  Weight: 72 kg

DRUGS (1)
  1. PREPIDIL [Suspect]
     Indication: LABOUR INDUCTION
     Dosage: 0.5 MG, UNK
     Route: 067
     Dates: start: 20101123

REACTIONS (8)
  - DISCOMFORT [None]
  - HYPOVOLAEMIC SHOCK [None]
  - DYSPNOEA [None]
  - UTERINE HYPERTONUS [None]
  - UTERINE ATONY [None]
  - HYPERSENSITIVITY [None]
  - RASH [None]
  - DISSEMINATED INTRAVASCULAR COAGULATION [None]
